FAERS Safety Report 17320901 (Version 1)
Quarter: 2020Q1

REPORT INFORMATION
  Report Type: Other
  Country: US (occurrence: US)
  Receive Date: 20200126
  Receipt Date: 20200126
  Transmission Date: 20200409
  Serious: Yes (Other)
  Sender: FDA-Public Use
  Company Number: US-ACORDA-ACO_158154_2019

PATIENT
  Sex: Female
  Weight: 81.63 kg

DRUGS (16)
  1. AUBAGIO [Suspect]
     Active Substance: TERIFLUNOMIDE
     Indication: PRODUCT USED FOR UNKNOWN INDICATION
     Dosage: 14 MILLIGRAM
     Route: 065
     Dates: start: 20190211
  2. AZITHROMYCIN ANHYDROUS. [Concomitant]
     Active Substance: AZITHROMYCIN ANHYDROUS
     Indication: PRODUCT USED FOR UNKNOWN INDICATION
     Dosage: 250 MILLIGRAM
     Route: 065
     Dates: start: 20180606
  3. LOVASTATIN. [Concomitant]
     Active Substance: LOVASTATIN
     Indication: PRODUCT USED FOR UNKNOWN INDICATION
     Dosage: 40 MILLIGRAM
     Route: 065
     Dates: start: 20190224
  4. COPAXONE [Concomitant]
     Active Substance: GLATIRAMER ACETATE
     Indication: PRODUCT USED FOR UNKNOWN INDICATION
     Dosage: 40MG/ML THREE TIMES A WEEK
     Route: 058
     Dates: start: 20190102
  5. COLESTIPOL [Concomitant]
     Active Substance: COLESTIPOL
     Indication: PRODUCT USED FOR UNKNOWN INDICATION
     Dosage: 1 GRAM
     Route: 065
     Dates: start: 20190319
  6. ROSUVASTATIN. [Concomitant]
     Active Substance: ROSUVASTATIN
     Indication: PRODUCT USED FOR UNKNOWN INDICATION
     Dosage: 10 MILLIGRAM
     Route: 065
     Dates: start: 20190329
  7. GABAPENTIN. [Concomitant]
     Active Substance: GABAPENTIN
     Indication: NECK PAIN
     Dosage: 600 MILLIGRAM, TID
     Route: 065
     Dates: start: 20190111
  8. AMPYRA [Suspect]
     Active Substance: DALFAMPRIDINE
     Indication: MULTIPLE SCLEROSIS
     Dosage: 10 MILLIGRAM, BID
     Route: 048
     Dates: start: 20190327
  9. BACLOFEN. [Concomitant]
     Active Substance: BACLOFEN
     Indication: PRODUCT USED FOR UNKNOWN INDICATION
     Dosage: 10 MILLIGRAM, HS
     Route: 065
     Dates: start: 20190225
  10. GABAPENTIN. [Concomitant]
     Active Substance: GABAPENTIN
     Indication: BACK PAIN
  11. LOPERAMIDE [Concomitant]
     Active Substance: LOPERAMIDE
     Indication: ANAL INCONTINENCE
     Dosage: 2 MILLIGRAM
     Route: 065
     Dates: start: 20190319
  12. LISINOPRIL AND HYDROCHLOROTHIAZIDE [Concomitant]
     Active Substance: HYDROCHLOROTHIAZIDE\LISINOPRIL
     Indication: PRODUCT USED FOR UNKNOWN INDICATION
     Dosage: 20MG-25MG
     Route: 065
     Dates: start: 20190111
  13. IBUPROFEN. [Concomitant]
     Active Substance: IBUPROFEN
     Indication: BACK PAIN
  14. DIAZEPAM. [Concomitant]
     Active Substance: DIAZEPAM
     Indication: PRODUCT USED FOR UNKNOWN INDICATION
     Dosage: 5 MILLIGRAM
     Route: 065
     Dates: start: 20180829
  15. VITAMIN D [Concomitant]
     Active Substance: VITAMIN D NOS
     Indication: PRODUCT USED FOR UNKNOWN INDICATION
     Dosage: 5000 INTERNATIONAL UNIT
     Route: 065
  16. IBUPROFEN. [Concomitant]
     Active Substance: IBUPROFEN
     Indication: NECK PAIN
     Dosage: UNK, PRN
     Route: 065

REACTIONS (31)
  - Pain in extremity [Unknown]
  - Hypokinesia [Unknown]
  - Arthralgia [Not Recovered/Not Resolved]
  - Depression [Recovered/Resolved]
  - Dysarthria [Unknown]
  - Hyperlipidaemia [Recovered/Resolved]
  - Musculoskeletal disorder [Unknown]
  - Nausea [Recovered/Resolved]
  - Disturbance in attention [Unknown]
  - Micturition urgency [Unknown]
  - Hypertension [Recovered/Resolved]
  - Temperature intolerance [Unknown]
  - Nocturia [Unknown]
  - Confusional state [Unknown]
  - Headache [Recovered/Resolved]
  - Fatigue [Unknown]
  - Gait disturbance [Unknown]
  - Diarrhoea [Unknown]
  - Muscular weakness [Recovered/Resolved]
  - Amnesia [Unknown]
  - Anxiety [Unknown]
  - Pollakiuria [Unknown]
  - Sexual dysfunction [Unknown]
  - Arthralgia [Unknown]
  - Stress [Unknown]
  - Insomnia [Unknown]
  - Rectal haemorrhage [Unknown]
  - Alopecia [Unknown]
  - Aphasia [Unknown]
  - Muscle spasms [Unknown]
  - Overweight [Unknown]
